FAERS Safety Report 4372092-X (Version None)
Quarter: 2004Q2

REPORT INFORMATION
  Report Type: 
  Country: None (occurrence: None)
  Receive Date: 20040603
  Receipt Date: 20040603
  Transmission Date: 20050107
  Serious: Yes (Hospitalization)
  Sender: FDA-Public Use
  Company Number: None

PATIENT
  Age: 52 Year
  Sex: Female

DRUGS (1)
  1. DEXTRAN IN SALINE 40% BAXTER [Suspect]
     Indication: THROMBOSIS PROPHYLAXIS
     Dosage: 5 ML ONCE IV
     Route: 042
     Dates: start: 20040323, end: 20040323

REACTIONS (2)
  - HYPOTENSION [None]
  - PROCEDURAL COMPLICATION [None]
